FAERS Safety Report 24137191 (Version 1)
Quarter: 2024Q3

REPORT INFORMATION
  Report Type: Spontaneous
  Country: US (occurrence: US)
  Receive Date: 20240725
  Receipt Date: 20240725
  Transmission Date: 20241016
  Serious: Yes (Hospitalization, Other)
  Sender: MERCK
  Company Number: US-009507513-2407USA010925

PATIENT
  Age: 53 Year
  Sex: Male

DRUGS (2)
  1. KEYTRUDA [Suspect]
     Active Substance: PEMBROLIZUMAB
     Indication: Lung adenocarcinoma
     Dosage: UNK
  2. PEMETREXED [Suspect]
     Active Substance: PEMETREXED
     Indication: Lung adenocarcinoma

REACTIONS (6)
  - Arthritis [Recovering/Resolving]
  - Immunodeficiency [Unknown]
  - Cellulitis [Recovered/Resolved]
  - Emphysema [Unknown]
  - Synovitis [Unknown]
  - Product use issue [Unknown]
